FAERS Safety Report 17528553 (Version 2)
Quarter: 2020Q3

REPORT INFORMATION
  Report Type: Spontaneous
  Country: US (occurrence: US)
  Receive Date: 20200312
  Receipt Date: 20200710
  Transmission Date: 20201102
  Serious: No
  Sender: FDA-Public Use
  Company Number: NVSC2020US067635

PATIENT
  Sex: Female

DRUGS (1)
  1. AMPICILLIN [Suspect]
     Active Substance: AMPICILLIN
     Indication: PROPHYLAXIS
     Dosage: 2 G (AT 30, 60, 90 MIN.)
     Route: 042

REACTIONS (1)
  - Maternal exposure during pregnancy [Unknown]
